FAERS Safety Report 11663352 (Version 2)
Quarter: 2015Q4

REPORT INFORMATION
  Report Type: Spontaneous
  Country: DK (occurrence: DK)
  Receive Date: 20151027
  Receipt Date: 20151110
  Transmission Date: 20160304
  Serious: Yes (Hospitalization)
  Sender: FDA-Public Use
  Company Number: DK-ACCORD-034815

PATIENT
  Age: 60 Year
  Sex: Female

DRUGS (13)
  1. LISINOPRIL. [Concomitant]
     Active Substance: LISINOPRIL
  2. ONDANSETRON [Concomitant]
     Active Substance: ONDANSETRON
  3. CLOPIDOGREL [Interacting]
     Active Substance: CLOPIDOGREL BISULFATE
     Indication: PRODUCT USED FOR UNKNOWN INDICATION
  4. METOCLOPRAMIDE. [Concomitant]
     Active Substance: METOCLOPRAMIDE
  5. SALICYLATE SODIUM/SALICYLIC ACID/SALICYLIC ACID TRIETHANOLAMINE [Concomitant]
  6. SIMVASTATIN. [Concomitant]
     Active Substance: SIMVASTATIN
  7. ESOMEPRAZOLE/ESOMEPRAZOLE MAGNESIUM/ESOMEPRAZOLE SODIUM [Concomitant]
  8. HYDROCHLOROTHIAZIDE. [Concomitant]
     Active Substance: HYDROCHLOROTHIAZIDE
  9. TRAMADOL. [Concomitant]
     Active Substance: TRAMADOL
  10. PACLITAXEL/PACLITAXEL LIPOSOME [Interacting]
     Active Substance: PACLITAXEL
     Indication: OVARIAN CANCER
  11. CITALOPRAM [Concomitant]
     Active Substance: CITALOPRAM HYDROBROMIDE
  12. PARACETAMOL [Concomitant]
     Active Substance: ACETAMINOPHEN
  13. CARBOPLATIN. [Suspect]
     Active Substance: CARBOPLATIN
     Indication: OVARIAN CANCER
     Dosage: AREA UNDER CURVE 5-6 MG X MIN X ML^-1, EVERY THIRD WEEK

REACTIONS (6)
  - Vomiting [Unknown]
  - Nausea [Unknown]
  - Drug interaction [Unknown]
  - Neuropathy peripheral [Unknown]
  - Drug clearance decreased [Unknown]
  - Neutrophil count decreased [None]
